FAERS Safety Report 9137752 (Version 1)
Quarter: 2013Q1

REPORT INFORMATION
  Report Type: Spontaneous
  Country: US (occurrence: US)
  Receive Date: 20130304
  Receipt Date: 20130304
  Transmission Date: 20140127
  Serious: No
  Sender: FDA-Public Use
  Company Number: US-ASTRAZENECA-2013SE05926

PATIENT
  Age: 87 Year
  Sex: Female
  Weight: 64.4 kg

DRUGS (4)
  1. ATENOLOL [Suspect]
     Indication: HEART RATE INCREASED
     Route: 065
     Dates: start: 2008
  2. SYMBICORT  PMDI [Suspect]
     Indication: ASTHMA
     Dosage: 2 PUFFS TWO TIMES DAILY
     Route: 055
  3. SYMBICORT  PMDI [Suspect]
     Indication: ASTHMA
     Dosage: 2 PUFFS DAILY
     Route: 055
     Dates: start: 2010
  4. MICARDIS [Concomitant]
     Indication: HYPERTENSION

REACTIONS (4)
  - Vocal cord inflammation [Unknown]
  - Dysuria [Unknown]
  - Dysphonia [Unknown]
  - Off label use [Unknown]
